FAERS Safety Report 5883312-4 (Version None)
Quarter: 2008Q3

REPORT INFORMATION
  Report Type: 
  Country: None (occurrence: None)
  Receive Date: 20080910
  Receipt Date: 20080828
  Transmission Date: 20090109
  Serious: Yes (Other)
  Sender: FDA-Public Use
  Company Number: 2008-02418

PATIENT
  Age: 69 Year
  Sex: Male
  Weight: 66 kg

DRUGS (5)
  1. VELCADE [Suspect]
     Indication: MULTIPLE MYELOMA
     Dosage: UNK, UNK, INTRAVENOUS, 1 MG/M2, UNK, INTRAVENOUS
     Route: 042
     Dates: end: 20080619
  2. VELCADE [Suspect]
     Indication: MULTIPLE MYELOMA
     Dosage: UNK, UNK, INTRAVENOUS, 1 MG/M2, UNK, INTRAVENOUS
     Route: 042
     Dates: start: 20080303
  3. TRAMADOL HCL [Concomitant]
  4. HYDROCHLOROTHIAZIDE [Concomitant]
  5. THALIDOMIDE [Concomitant]

REACTIONS (2)
  - NEUROPATHY PERIPHERAL [None]
  - OEDEMA PERIPHERAL [None]
